FAERS Safety Report 26045933 (Version 1)
Quarter: 2025Q4

REPORT INFORMATION
  Report Type: Spontaneous
  Country: AU (occurrence: AU)
  Receive Date: 20251114
  Receipt Date: 20251114
  Transmission Date: 20260118
  Serious: Yes (Hospitalization, Other)
  Sender: RANBAXY
  Company Number: AU-SUN PHARMACEUTICAL INDUSTRIES LTD-2025R1-536135

PATIENT
  Age: 73 Year
  Sex: Female
  Weight: 67.9 kg

DRUGS (25)
  1. LENALIDOMIDE [Suspect]
     Active Substance: LENALIDOMIDE
     Indication: Follicular lymphoma
     Dosage: 20 MILLIGRAM, QD
     Route: 048
     Dates: start: 20241126, end: 20241216
  2. RITUXIMAB [Suspect]
     Active Substance: RITUXIMAB
     Indication: Follicular lymphoma
     Dosage: 620 MILLIGRAM
     Route: 042
     Dates: start: 20240808, end: 20240808
  3. TAZEMETOSTAT [Suspect]
     Active Substance: TAZEMETOSTAT
     Indication: Follicular lymphoma
     Dosage: 400 MILLIGRAM, BID
     Route: 048
     Dates: start: 20241126, end: 20241212
  4. TAZEMETOSTAT [Suspect]
     Active Substance: TAZEMETOSTAT
     Dosage: 400 MILLIGRAM, INTERVAL: 2 DAY
     Route: 048
     Dates: start: 20250527, end: 20250623
  5. BACTRIM [Concomitant]
     Active Substance: SULFAMETHOXAZOLE\TRIMETHOPRIM
     Indication: Antibiotic prophylaxis
     Dosage: UNK
     Route: 065
     Dates: start: 20240411
  6. ENDEP [Concomitant]
     Active Substance: AMITRIPTYLINE HYDROCHLORIDE
     Indication: Prophylaxis
     Dosage: 25 MILLIGRAM, DAILY
     Route: 065
     Dates: start: 20231001, end: 20250722
  7. SPIRIVA [Concomitant]
     Active Substance: TIOTROPIUM BROMIDE MONOHYDRATE
     Indication: Prophylaxis
     Dosage: 25 MILLIGRAM, DAILY
     Route: 065
     Dates: start: 2016
  8. NALOXONE HYDROCHLORIDE\OXYCODONE HYDROCHLORIDE [Concomitant]
     Active Substance: NALOXONE HYDROCHLORIDE\OXYCODONE HYDROCHLORIDE
     Indication: Cancer pain
     Dosage: UNK, BID
     Route: 065
     Dates: start: 2022
  9. APIXABAN [Concomitant]
     Active Substance: APIXABAN
     Indication: Atrial fibrillation
     Dosage: 5 MILLIGRAM, BID
     Route: 065
     Dates: start: 20120101, end: 20250722
  10. ASPIRIN [Concomitant]
     Active Substance: ASPIRIN
     Indication: Thrombosis prophylaxis
     Dosage: 100 MILLIGRAM, DAILY
     Route: 065
     Dates: start: 20240413
  11. CETIRIZINE HYDROCHLORIDE [Concomitant]
     Active Substance: CETIRIZINE HYDROCHLORIDE
     Indication: Rash pruritic
     Dosage: 10 MILLIGRAM, BID
     Route: 065
     Dates: start: 20240521
  12. FILGRASTIM [Concomitant]
     Active Substance: FILGRASTIM
     Indication: Neutropenia
     Dosage: 300 MILLIGRAM
     Route: 065
     Dates: start: 20240604
  13. FUROSEMIDE [Concomitant]
     Active Substance: FUROSEMIDE
     Indication: Pleural effusion
     Dosage: 50 MILLIGRAM
     Route: 065
  14. FUROSEMIDE [Concomitant]
     Active Substance: FUROSEMIDE
     Dosage: 40 MILLIGRAM, DAILY
     Route: 065
     Dates: start: 20250708
  15. HYDROCORTISONE [Concomitant]
     Active Substance: HYDROCORTISONE
     Indication: Rash pruritic
     Dosage: UNK, BID
     Route: 065
     Dates: start: 20240521
  16. HYDROXOCOBALAMIN [Concomitant]
     Active Substance: HYDROXOCOBALAMIN
     Indication: Vitamin B12 deficiency
     Dosage: 1000 MILLIGRAM, DAILY
     Route: 048
     Dates: start: 20240527
  17. HYDROXOCOBALAMIN [Concomitant]
     Active Substance: HYDROXOCOBALAMIN
     Dosage: 1000 MILLIGRAM, DAILY
     Route: 058
     Dates: start: 20240521, end: 20240521
  18. MAGNESIUM [Concomitant]
     Active Substance: MAGNESIUM
     Indication: Prophylaxis
     Dosage: 1 DOSE, DAILY
     Route: 065
     Dates: start: 20240110
  19. MAGNESIUM [Concomitant]
     Active Substance: MAGNESIUM
     Dosage: 2 DOSE,BID
     Route: 065
     Dates: start: 2022
  20. MAGNESIUM [Concomitant]
     Active Substance: MAGNESIUM
     Indication: Upper respiratory tract infection
     Dosage: 5 MILLIGRAM
     Route: 065
     Dates: start: 20241109
  21. ACETAMINOPHEN [Concomitant]
     Active Substance: ACETAMINOPHEN
     Indication: Cancer pain
     Dosage: 1 GRAM, QID
     Route: 065
     Dates: start: 2022
  22. POTASSIUM CHLORIDE [Concomitant]
     Active Substance: POTASSIUM CHLORIDE
     Indication: Prophylaxis
     Dosage: 600 MILLIGRAM, DAILY
     Route: 065
     Dates: start: 20241001
  23. PREDNISOLONE [Concomitant]
     Active Substance: PREDNISOLONE
     Indication: Upper respiratory tract infection
     Dosage: 50 MILLIGRAM, DAILY
     Route: 065
     Dates: start: 20250624, end: 20250626
  24. PREDNISOLONE [Concomitant]
     Active Substance: PREDNISOLONE
     Indication: Chronic obstructive pulmonary disease
  25. PREDNISOLONE [Concomitant]
     Active Substance: PREDNISOLONE
     Indication: Upper respiratory tract infection

REACTIONS (2)
  - Ejection fraction decreased [Not Recovered/Not Resolved]
  - Respiratory tract infection [Recovered/Resolved with Sequelae]

NARRATIVE: CASE EVENT DATE: 20241212
